FAERS Safety Report 12172571 (Version 1)
Quarter: 2016Q1

REPORT INFORMATION
  Report Type: Spontaneous
  Country: DE (occurrence: DE)
  Receive Date: 20160311
  Receipt Date: 20160311
  Transmission Date: 20160526
  Serious: Yes (Other)
  Sender: FDA-Public Use
  Company Number: DE-MYLANLABS-2016M1010525

PATIENT

DRUGS (4)
  1. ALLOPURINOL. [Suspect]
     Active Substance: ALLOPURINOL
     Indication: GOUTY ARTHRITIS
     Dosage: 100 MG/DAY
     Route: 065
  2. CORTICOSTEROID NOS [Suspect]
     Active Substance: CORTICOSTEROID NOS
     Indication: PRODUCT USED FOR UNKNOWN INDICATION
     Dosage: (30 MG/DAY) WITH DOSE TAPERING (30, 20, 10, 5 MG/DAY) EVERY 3 DAYS
     Route: 065
  3. COLCHICINE. [Suspect]
     Active Substance: COLCHICINE
     Indication: GOUTY ARTHRITIS
     Dosage: INITIATION DOSE NOT STATED; DEVELOPED ADR WITH DOSE }1 MG/DAY
     Route: 065
  4. COLCHICINE. [Suspect]
     Active Substance: COLCHICINE
     Dosage: 0.5 MG/DAY
     Route: 065

REACTIONS (3)
  - Hypersensitivity [Unknown]
  - Diarrhoea [Unknown]
  - Hyperglycaemia [Unknown]
